FAERS Safety Report 5064164-1 (Version None)
Quarter: 2006Q3

REPORT INFORMATION
  Report Type: 
  Country: None (occurrence: None)
  Receive Date: 20060728
  Receipt Date: 20060113
  Transmission Date: 20061208
  Serious: No
  Sender: FDA-Public Use
  Company Number: US-GLAXOSMITHKLINE-A0589430A

PATIENT
  Age: 5 Month
  Sex: Male

DRUGS (2)
  1. ZANTAC [Suspect]
     Indication: DRUG USE FOR UNKNOWN INDICATION
     Dosage: 105MG TWICE PER DAY
     Route: 048
     Dates: start: 20051201
  2. NO CONCURRENT MEDICATION [Concomitant]

REACTIONS (2)
  - INCORRECT DOSE ADMINISTERED [None]
  - OVERDOSE [None]
